FAERS Safety Report 6267375-2 (Version None)
Quarter: 2009Q3

REPORT INFORMATION
  Report Type: 
  Country: None (occurrence: None)
  Receive Date: 20090710
  Receipt Date: 20090625
  Transmission Date: 20100115
  Serious: Yes (Hospitalization)
  Sender: FDA-Public Use
  Company Number: IDA-00225

PATIENT
  Age: 29 Year
  Sex: Female

DRUGS (2)
  1. PROPRANOLOL [Suspect]
     Indication: SINUS TACHYCARDIA
     Dosage: 10 MG TID / DOSE TEXT: DOSE REDUCED ORAL FORMULATION: UNKNOWN / ORAL FORMULATION: UNKNOWN
     Route: 048
     Dates: end: 20090518
  2. PROPRANOLOL [Suspect]
     Indication: SINUS TACHYCARDIA
     Dosage: 10 MG TID / DOSE TEXT: DOSE REDUCED ORAL FORMULATION: UNKNOWN / ORAL FORMULATION: UNKNOWN
     Route: 048
     Dates: start: 20070430

REACTIONS (1)
  - HYPERKALAEMIA [None]
